FAERS Safety Report 4706383-7 (Version None)
Quarter: 2005Q3

REPORT INFORMATION
  Report Type: 
  Country: None (occurrence: None)
  Receive Date: 20050705
  Receipt Date: 20041220
  Transmission Date: 20060218
  Serious: Yes (Death, Hospitalization)
  Sender: FDA-Public Use
  Company Number: 2004UW25861

PATIENT
  Age: 27475 Day
  Sex: Male
  Weight: 93 kg

DRUGS (10)
  1. IRESSA [Suspect]
     Indication: NON-SMALL CELL LUNG CANCER
     Route: 048
     Dates: start: 20041102, end: 20041124
  2. CELECOXIB [Suspect]
     Indication: NON-SMALL CELL LUNG CANCER
     Route: 048
     Dates: start: 20041102, end: 20041124
  3. ATENOLOL [Concomitant]
     Route: 048
  4. COMBIVENT [Concomitant]
     Route: 055
  5. COUMADIN [Concomitant]
     Dosage: 5 MG ALTERNATING WITH 2.5 MG
     Dates: start: 20041016
  6. LORATADINE [Concomitant]
     Route: 048
  7. NIACIN [Concomitant]
  8. HYDRALAZINE [Concomitant]
     Route: 048
  9. FLONASE [Concomitant]
     Route: 045
  10. KEFLEX [Concomitant]

REACTIONS (3)
  - INTERSTITIAL LUNG DISEASE [None]
  - PNEUMONIA [None]
  - PULMONARY EMBOLISM [None]
